FAERS Safety Report 11459233 (Version 4)
Quarter: 2015Q4

REPORT INFORMATION
  Report Type: Report from Study
  Country: CA (occurrence: CA)
  Receive Date: 20150901
  Receipt Date: 20151029
  Transmission Date: 20160304
  Serious: Yes (Other)
  Sender: FDA-Public Use
  Company Number: CA-SA-2014SA133183

PATIENT
  Age: 47 Year
  Sex: Female
  Weight: 56.7 kg

DRUGS (8)
  1. ZOPICLONE [Concomitant]
     Active Substance: ZOPICLONE
     Route: 048
  2. GABAPENTIN. [Concomitant]
     Active Substance: GABAPENTIN
     Route: 048
     Dates: start: 201312
  3. ESTROGEL [Concomitant]
     Active Substance: ESTRADIOL
  4. LEMTRADA [Suspect]
     Active Substance: ALEMTUZUMAB
     Indication: RELAPSING-REMITTING MULTIPLE SCLEROSIS
     Dosage: DAILY FOR 5 DAYS
     Route: 041
     Dates: start: 20140922, end: 20140926
  5. ESTRADIOL. [Concomitant]
     Active Substance: ESTRADIOL
  6. RESTORALAX [Concomitant]
     Active Substance: POLYETHYLENE GLYCOL 3350
     Route: 048
     Dates: start: 201402
  7. BACLOFEN. [Concomitant]
     Active Substance: BACLOFEN
     Route: 048
     Dates: start: 201402
  8. HUMAN GROWTH HORMONE, RECOMBINANT [Concomitant]
     Active Substance: SOMATROPIN

REACTIONS (42)
  - Gastric ulcer [Not Recovered/Not Resolved]
  - Red blood cell count decreased [Not Recovered/Not Resolved]
  - Flushing [Unknown]
  - Paraesthesia [Unknown]
  - Chest discomfort [Unknown]
  - Lymphocyte count decreased [Not Recovered/Not Resolved]
  - Multiple sclerosis relapse [Recovered/Resolved]
  - Constipation [Not Recovered/Not Resolved]
  - Infusion related reaction [Unknown]
  - Influenza like illness [Unknown]
  - pH urine increased [Recovered/Resolved]
  - Dermatitis [Not Recovered/Not Resolved]
  - Fatigue [Recovering/Resolving]
  - Muscular weakness [Recovering/Resolving]
  - White blood cell count decreased [Not Recovered/Not Resolved]
  - Haematocrit decreased [Not Recovered/Not Resolved]
  - Mobility decreased [Recovering/Resolving]
  - Headache [Recovering/Resolving]
  - Nausea [Recovering/Resolving]
  - Urticaria [Recovering/Resolving]
  - Dyspnoea [Recovering/Resolving]
  - Neutrophil count decreased [Recovered/Resolved]
  - Urinary sediment present [Unknown]
  - Abdominal distension [Recovered/Resolved]
  - Alopecia [Not Recovered/Not Resolved]
  - Monocyte count decreased [Recovered/Resolved]
  - Bone pain [Unknown]
  - Insomnia [Unknown]
  - Pain [Recovering/Resolving]
  - Malaise [Unknown]
  - Muscle spasms [Recovering/Resolving]
  - Lip swelling [Recovering/Resolving]
  - Pyrexia [Unknown]
  - Burning sensation [Recovering/Resolving]
  - Arthralgia [Unknown]
  - Chills [Recovered/Resolved]
  - Eye irritation [Unknown]
  - Platelet count decreased [Recovered/Resolved]
  - Mean platelet volume decreased [Not Recovered/Not Resolved]
  - Vision blurred [Recovered/Resolved]
  - Tremor [Recovering/Resolving]
  - Musculoskeletal stiffness [Unknown]

NARRATIVE: CASE EVENT DATE: 20140922
